FAERS Safety Report 15358696 (Version 2)
Quarter: 2018Q3

REPORT INFORMATION
  Report Type: Spontaneous
  Country: US (occurrence: US)
  Receive Date: 20180906
  Receipt Date: 20180925
  Transmission Date: 20181010
  Serious: Yes (Hospitalization)
  Sender: FDA-Public Use
  Company Number: US-VIFOR (INTERNATIONAL) INC.-VIT-2018-08846

PATIENT
  Sex: Male

DRUGS (20)
  1. AMLODIPINE BESYLATE. [Concomitant]
     Active Substance: AMLODIPINE BESYLATE
  2. ATORVASTATIN CALCIUM. [Concomitant]
     Active Substance: ATORVASTATIN CALCIUM
  3. ULORIC [Concomitant]
     Active Substance: FEBUXOSTAT
  4. ASPIRIN. [Concomitant]
     Active Substance: ASPIRIN
  5. VELTASSA [Suspect]
     Active Substance: PATIROMER
     Indication: HYPERKALAEMIA
     Route: 048
     Dates: start: 20160415
  6. COUMADIN [Concomitant]
     Active Substance: WARFARIN SODIUM
  7. CLOPIDOGREL BISULFATE. [Concomitant]
     Active Substance: CLOPIDOGREL BISULFATE
  8. CYTRA?2 [Concomitant]
     Active Substance: CITRIC ACID MONOHYDRATE\TRISODIUM CITRATE DIHYDRATE
  9. LOSARTAN. [Concomitant]
     Active Substance: LOSARTAN
  10. POTASSIUM [Concomitant]
     Active Substance: POTASSIUM
  11. TERAZOSIN  HCL [Concomitant]
     Active Substance: TERAZOSIN HYDROCHLORIDE
  12. CALCITRIOL. [Concomitant]
     Active Substance: CALCITRIOL
  13. LASIX [Concomitant]
     Active Substance: FUROSEMIDE
  14. EPOGEN [Concomitant]
     Active Substance: ERYTHROPOIETIN
  15. METOPROLOL TARTRATE. [Concomitant]
     Active Substance: METOPROLOL TARTRATE
  16. PIOGLITAZONE HCL [Concomitant]
     Active Substance: PIOGLITAZONE
  17. PROTONIX [Concomitant]
     Active Substance: PANTOPRAZOLE SODIUM
  18. VITAMIN D3 [Concomitant]
     Active Substance: CHOLECALCIFEROL
  19. NEPHRO VITE RX [Concomitant]
     Active Substance: ASCORBIC ACID\BIOTIN\CALCIUM PANTOTHENATE\CYANOCOBALAMIN\FOLIC ACID\NIACINAMIDE\PYRIDOXINE HYDROCHLORIDE\RIBOFLAVIN\THIAMINE MONONITRATE
  20. NATEGLINIDE. [Concomitant]
     Active Substance: NATEGLINIDE

REACTIONS (2)
  - Drug dose omission [Unknown]
  - Renal transplant [Unknown]
